FAERS Safety Report 7777481-9 (Version None)
Quarter: 2011Q3

REPORT INFORMATION
  Report Type: 
  Country: None (occurrence: None)
  Receive Date: 20110926
  Receipt Date: 20110914
  Transmission Date: 20111222
  Serious: Yes (Other)
  Sender: FDA-Public Use
  Company Number: CN-NOVOPROD-335115

PATIENT

DRUGS (1)
  1. NOVOLIN R [Suspect]
     Indication: DIABETES MELLITUS
     Dosage: 3 TO 4 IU IN THE MORNING AND 6 IU IN THE EVENING

REACTIONS (6)
  - FAECAL INCONTINENCE [None]
  - VOMITING [None]
  - INDURATION [None]
  - DYSPNOEA [None]
  - RASH [None]
  - PALPITATIONS [None]
